FAERS Safety Report 6863522-X (Version None)
Quarter: 2010Q3

REPORT INFORMATION
  Report Type: 
  Country: None (occurrence: None)
  Receive Date: 20100720
  Receipt Date: 20100707
  Transmission Date: 20110219
  Serious: Yes (Life-Threatening)
  Sender: FDA-Public Use
  Company Number: WAES 1005USA02795

PATIENT
  Age: 67 Year
  Sex: Male

DRUGS (5)
  1. ZOCOR [Suspect]
     Indication: ACUTE CORONARY SYNDROME
     Dosage: 80 MG/DAILY PO
     Route: 048
     Dates: start: 20070529
  2. PLACEBO (UNSPECIFIED) [Suspect]
     Indication: ACUTE CORONARY SYNDROME
     Dosage: PO
     Route: 048
     Dates: start: 20070529
  3. KARDEGIC [Concomitant]
  4. AMLODIPINE [Concomitant]
  5. RAMIPRIL [Concomitant]

REACTIONS (1)
  - RECTAL CANCER [None]
